FAERS Safety Report 12861901 (Version 1)
Quarter: 2016Q4

REPORT INFORMATION
  Report Type: Spontaneous
  Country: SG (occurrence: SG)
  Receive Date: 20161019
  Receipt Date: 20161019
  Transmission Date: 20170207
  Serious: Yes (Other)
  Sender: FDA-Public Use
  Company Number: SG-BAYER-2016-197910

PATIENT
  Age: 37 Year
  Sex: Female

DRUGS (2)
  1. ACETYLSALICYLIC ACID({=100 MG) [Suspect]
     Active Substance: ASPIRIN
  2. HEPARIN [Concomitant]
     Active Substance: HEPARIN SODIUM
     Dosage: 1 MG/KG, QD

REACTIONS (2)
  - Antiphospholipid syndrome [None]
  - Maternal exposure during pregnancy [None]
